FAERS Safety Report 6918072-9 (Version None)
Quarter: 2010Q3

REPORT INFORMATION
  Report Type: 
  Country: None (occurrence: None)
  Receive Date: 20100806
  Receipt Date: 20100721
  Transmission Date: 20110219
  Serious: Yes (Death, Life-Threatening, Hospitalization)
  Sender: FDA-Public Use
  Company Number: CTI_01194_2010

PATIENT
  Sex: Male

DRUGS (22)
  1. CUROSURF [Suspect]
     Indication: NEONATAL RESPIRATORY DISTRESS SYNDROME
     Dosage: (120 MG QD ENDOTRACHEAL), (120 MG QD ENDOTRACHEAL), (120 MG QD ENDOTRACHEAL)
     Route: 007
     Dates: start: 20100428, end: 20100428
  2. CUROSURF [Suspect]
     Indication: NEONATAL RESPIRATORY DISTRESS SYNDROME
     Dosage: (120 MG QD ENDOTRACHEAL), (120 MG QD ENDOTRACHEAL), (120 MG QD ENDOTRACHEAL)
     Route: 007
     Dates: start: 20100429, end: 20100429
  3. CUROSURF [Suspect]
     Indication: NEONATAL RESPIRATORY DISTRESS SYNDROME
     Dosage: (120 MG QD ENDOTRACHEAL), (120 MG QD ENDOTRACHEAL), (120 MG QD ENDOTRACHEAL)
     Route: 007
     Dates: start: 20100501, end: 20100501
  4. CUROSURF [Suspect]
  5. CUROSURF [Suspect]
  6. AMPICILLIN SODIUM [Concomitant]
  7. PHENOBARBITAL [Concomitant]
  8. CALCIUM [Concomitant]
  9. DIPIDOLOR [Concomitant]
  10. MEPIVACAIN [Concomitant]
  11. INSULIN [Concomitant]
  12. MORPHINE SULFATE [Concomitant]
  13. DOPAMINE HCL [Concomitant]
  14. DOBUTAMINE HCL [Concomitant]
  15. NOREPINEPHRINE BITARTRATE [Concomitant]
  16. MIDAZOLAM HCL [Concomitant]
  17. PANCURONIUM [Concomitant]
  18. FENTANYL [Concomitant]
  19. KONAKION [Concomitant]
  20. THEOPHYLLINE [Concomitant]
  21. CEFOTAXIME SODIUM [Concomitant]
  22. GENTAMICIN [Concomitant]

REACTIONS (5)
  - CAPILLARY LEAK SYNDROME [None]
  - DRUG INEFFECTIVE [None]
  - PNEUMOTHORAX [None]
  - SEPSIS NEONATAL [None]
  - SHOCK [None]
